FAERS Safety Report 17966498 (Version 1)
Quarter: 2020Q3

REPORT INFORMATION
  Report Type: Spontaneous
  Country: FR (occurrence: FR)
  Receive Date: 20200701
  Receipt Date: 20200701
  Transmission Date: 20201103
  Serious: Yes (Life-Threatening)
  Sender: FDA-Public Use
  Company Number: FR-ROCHE-2632185

PATIENT
  Age: 21 Year
  Sex: Male

DRUGS (3)
  1. RIVOTRIL [Suspect]
     Active Substance: CLONAZEPAM
     Indication: SUBSTANCE ABUSE
     Route: 065
     Dates: start: 20200527, end: 20200527
  2. BUPRENORPHINE. [Suspect]
     Active Substance: BUPRENORPHINE
     Indication: PRODUCT USED FOR UNKNOWN INDICATION
     Route: 065
  3. PREGABALINE [Suspect]
     Active Substance: PREGABALIN
     Indication: SUBSTANCE ABUSE
     Route: 065
     Dates: start: 20200527, end: 20200527

REACTIONS (2)
  - Drug abuse [Not Recovered/Not Resolved]
  - Coma [Recovered/Resolved]

NARRATIVE: CASE EVENT DATE: 20200527
